FAERS Safety Report 6318476-1 (Version None)
Quarter: 2009Q3

REPORT INFORMATION
  Report Type: 
  Country: None (occurrence: None)
  Receive Date: 20090821
  Receipt Date: 20090819
  Transmission Date: 20100115
  Serious: Yes (Other)
  Sender: FDA-Public Use
  Company Number: FR-BRISTOL-MYERS SQUIBB COMPANY-14426043

PATIENT
  Sex: Male

DRUGS (2)
  1. ERBITUX [Suspect]
     Indication: HYPOPHARYNGEAL CANCER
     Route: 042
  2. RADIOTHERAPY [Concomitant]

REACTIONS (1)
  - HAEMOGLOBIN DECREASED [None]
